FAERS Safety Report 4779617-0 (Version None)
Quarter: 2005Q3

REPORT INFORMATION
  Report Type: 
  Country: None (occurrence: None)
  Receive Date: 20050914
  Receipt Date: 20050126
  Transmission Date: 20060218
  Serious: Yes (Death, Hospitalization)
  Sender: FDA-Public Use
  Company Number: 163-20785-05010498

PATIENT
  Age: 64 Year
  Sex: Male
  Weight: 79.5 kg

DRUGS (15)
  1. THALOMID [Suspect]
     Indication: NON-SMALL CELL LUNG CANCER
     Dosage: 200 MG, QHS, ORAL
     Route: 048
     Dates: start: 20050117, end: 20050208
  2. DOCETAXEL (DOCETAXEL) [Suspect]
     Indication: NON-SMALL CELL LUNG CANCER
     Dosage: 54.6 MG, QD, INTRAVENOUS;  56 MG, QD, INTRAVENOUS
     Route: 042
     Dates: start: 20050125, end: 20050125
  3. DOCETAXEL (DOCETAXEL) [Suspect]
     Indication: NON-SMALL CELL LUNG CANCER
     Dosage: 54.6 MG, QD, INTRAVENOUS;  56 MG, QD, INTRAVENOUS
     Route: 042
     Dates: start: 20050201, end: 20050201
  4. NORVASC [Concomitant]
  5. NEXIUM [Concomitant]
  6. ALBUTEROL MDI (SALBUTAMOL) (INHALANT) [Concomitant]
  7. MS CONTIN [Concomitant]
  8. AZITHROMYCIN [Concomitant]
  9. CEFUROXIME [Concomitant]
  10. PREDNISONE [Concomitant]
  11. ENOXAPARIN SODIUM [Concomitant]
  12. BENADRYL [Concomitant]
  13. FAMOTIDINE [Concomitant]
  14. DECADRON [Concomitant]
  15. OXYCODONE HCL [Concomitant]

REACTIONS (4)
  - DEATH [None]
  - DISEASE PROGRESSION [None]
  - HYPOXIA [None]
  - PERICARDIAL EFFUSION [None]
